FAERS Safety Report 5570863-5 (Version None)
Quarter: 2007Q4

REPORT INFORMATION
  Report Type: 
  Country: None (occurrence: None)
  Receive Date: 20071221
  Receipt Date: 20071218
  Transmission Date: 20080405
  Serious: Yes (Life-Threatening)
  Sender: FDA-Public Use
  Company Number: MY-ASTRAZENECA-2007AP08010

PATIENT
  Sex: Male
  Weight: 60 kg

DRUGS (5)
  1. CRESTOR [Suspect]
     Indication: DYSLIPIDAEMIA
     Route: 048
     Dates: start: 20060101, end: 20070919
  2. NORVASC [Concomitant]
     Indication: HYPERTENSION
     Route: 048
     Dates: start: 20070919
  3. EFFEXOR XR [Concomitant]
     Indication: DEPRESSION
     Route: 048
     Dates: start: 20070919
  4. CELEBREX [Concomitant]
     Indication: MYALGIA
     Route: 048
     Dates: start: 20070918, end: 20070928
  5. ATACAND [Concomitant]
     Indication: HYPERTENSION
     Route: 048
     Dates: start: 20050101

REACTIONS (3)
  - HYPERKALAEMIA [None]
  - MYOSITIS [None]
  - RENAL FAILURE ACUTE [None]
